FAERS Safety Report 9436237 (Version 1)
Quarter: 2013Q3

REPORT INFORMATION
  Report Type: Spontaneous
  Country: JP (occurrence: JP)
  Receive Date: 20130801
  Receipt Date: 20130801
  Transmission Date: 20140515
  Serious: Yes (Hospitalization, Other)
  Sender: FDA-Public Use
  Company Number: JP-BRISTOL-MYERS SQUIBB COMPANY-19156603

PATIENT
  Age: 51 Year
  Sex: Male

DRUGS (6)
  1. STOCRIN TABS 600 MG [Suspect]
     Indication: HIV INFECTION
     Dosage: FILM COATED TABS
     Route: 048
     Dates: start: 20130607, end: 20130622
  2. TRUVADA [Suspect]
     Indication: HIV INFECTION
     Dosage: TABS
     Route: 048
     Dates: start: 20130607, end: 20130622
  3. ALLEGRA [Suspect]
     Indication: PLATELET COUNT DECREASED
     Route: 048
     Dates: start: 20130618, end: 20130624
  4. ACTOS [Concomitant]
     Dosage: TABS
     Dates: start: 20130624
  5. METGLUCO [Concomitant]
     Dosage: TABS
     Dates: start: 20130624
  6. AVAPRO [Concomitant]

REACTIONS (4)
  - Platelet count decreased [Recovering/Resolving]
  - Cerebral haemorrhage [Unknown]
  - Rash [Unknown]
  - Headache [Unknown]
